FAERS Safety Report 4535006-5 (Version None)
Quarter: 2004Q4

REPORT INFORMATION
  Report Type: 
  Country: None (occurrence: None)
  Receive Date: 20041214
  Receipt Date: 20040723
  Transmission Date: 20050328
  Serious: No
  Sender: FDA-Public Use
  Company Number: USA040773475

PATIENT
  Age: 55 Year
  Sex: Male
  Weight: 98 kg

DRUGS (5)
  1. CIALIS [Suspect]
     Indication: ERECTILE DYSFUNCTION
     Dosage: 20 MG AS NEEDED
     Dates: start: 20040721
  2. ETODOLAC [Concomitant]
  3. VALIUM [Concomitant]
  4. XANAX (ALPRAZOLAM DUM) [Concomitant]
  5. HYDROCODONE [Concomitant]

REACTIONS (6)
  - BACK PAIN [None]
  - BODY TEMPERATURE INCREASED [None]
  - CHILLS [None]
  - INFLUENZA LIKE ILLNESS [None]
  - PHARYNGOLARYNGEAL PAIN [None]
  - THERAPEUTIC RESPONSE DECREASED [None]
